FAERS Safety Report 9330641 (Version 1)
Quarter: 2013Q2

REPORT INFORMATION
  Report Type: Spontaneous
  Country: US (occurrence: None)
  Receive Date: 20130604
  Receipt Date: 20130604
  Transmission Date: 20140414
  Serious: Yes (Hospitalization)
  Sender: FDA-Public Use
  Company Number: None

PATIENT
  Age: 46 Year
  Sex: Male

DRUGS (1)
  1. JANUVIA [Suspect]

REACTIONS (4)
  - Pancreatitis acute [None]
  - Acute respiratory distress syndrome [None]
  - Pseudocyst [None]
  - Systemic inflammatory response syndrome [None]
